FAERS Safety Report 5217378-1 (Version None)
Quarter: 2007Q1

REPORT INFORMATION
  Report Type: 
  Country: None (occurrence: None)
  Receive Date: 20070124
  Receipt Date: 20060125
  Transmission Date: 20070707
  Serious: No
  Sender: FDA-Public Use
  Company Number: US-GLAXOSMITHKLINE-A0590910A

PATIENT
  Age: 45 Year
  Sex: Female

DRUGS (3)
  1. PAXIL CR [Suspect]
     Indication: DEPRESSION
     Dosage: 25MG PER DAY
     Route: 048
     Dates: end: 20060119
  2. HERBS [Concomitant]
  3. TYLENOL [Concomitant]

REACTIONS (2)
  - DIZZINESS [None]
  - NAUSEA [None]
